FAERS Safety Report 8150195-1 (Version None)
Quarter: 2012Q1

REPORT INFORMATION
  Report Type: 
  Country: None (occurrence: None)
  Receive Date: 20120220
  Receipt Date: 20120213
  Transmission Date: 20120608
  Serious: No
  Sender: FDA-Public Use
  Company Number: US-PFIZER INC-2012038791

PATIENT
  Sex: Female
  Weight: 64.399 kg

DRUGS (3)
  1. CELEBREX [Suspect]
     Indication: ARTHRITIS
     Dosage: 200 MG, 1X/DAY
     Route: 048
     Dates: end: 20120127
  2. ESTRADIOL [Concomitant]
     Indication: POSTOPERATIVE CARE
     Dosage: UNK
  3. CELEBREX [Suspect]

REACTIONS (1)
  - MENISCUS LESION [None]
